FAERS Safety Report 6502010-7 (Version None)
Quarter: 2009Q4

REPORT INFORMATION
  Report Type: 
  Country: None (occurrence: None)
  Receive Date: 20091209
  Receipt Date: 20091202
  Transmission Date: 20100525
  Serious: Yes (Life-Threatening, Other)
  Sender: FDA-Public Use
  Company Number: THYM-1001302

PATIENT
  Age: 4 Year
  Sex: Male
  Weight: 15 kg

DRUGS (9)
  1. THYMOGLOBULIN [Suspect]
     Indication: STEM CELL TRANSPLANT
     Dosage: 5 MG/KG, QD, INTRAVENOUS
     Route: 042
     Dates: start: 20091022, end: 20091028
  2. POLARAMINE [Concomitant]
  3. SOLU-MEDROL [Concomitant]
  4. PERFALGAN (PARACETAMOL) [Concomitant]
  5. FLUDARABINE PHOSPHATE [Concomitant]
  6. AMIKIN [Concomitant]
  7. VANCOMYCIN [Concomitant]
  8. CANCIDAS (CASPOFUNGIN) [Concomitant]
  9. ZOFRAN [Concomitant]

REACTIONS (3)
  - CAPILLARY LEAK SYNDROME [None]
  - PYREXIA [None]
  - RENAL FAILURE [None]
